FAERS Safety Report 8588785-4 (Version None)
Quarter: 2012Q3

REPORT INFORMATION
  Report Type: 
  Country: None (occurrence: None)
  Receive Date: 20120813
  Receipt Date: 20120807
  Transmission Date: 20120928
  Serious: Yes (Death, Hospitalization, Other)
  Sender: FDA-Public Use
  Company Number: PHEH2011US012762

PATIENT
  Sex: Male

DRUGS (2)
  1. LASIX [Suspect]
  2. GLEEVEC [Suspect]
     Indication: MALIGNANT SOFT TISSUE NEOPLASM
     Dosage: 400 MG, DAILY
     Route: 048
     Dates: start: 20111229

REACTIONS (7)
  - DEATH [None]
  - FAILURE TO THRIVE [None]
  - DISEASE COMPLICATION [None]
  - DEAFNESS [None]
  - MALAISE [None]
  - FALL [None]
  - DEHYDRATION [None]
